FAERS Safety Report 11109197 (Version 1)
Quarter: 2015Q2

REPORT INFORMATION
  Report Type: Spontaneous
  Country: US (occurrence: US)
  Receive Date: 20150513
  Receipt Date: 20150513
  Transmission Date: 20150821
  Serious: No
  Sender: FDA-Public Use
  Company Number: US-TEVA-562027ACC

PATIENT
  Sex: Female

DRUGS (3)
  1. TAKE ACTION [Suspect]
     Active Substance: LEVONORGESTREL
     Route: 065
     Dates: start: 201504, end: 201504
  2. TAKE ACTION [Suspect]
     Active Substance: LEVONORGESTREL
     Indication: POST COITAL CONTRACEPTION
     Route: 065
     Dates: start: 201504, end: 201504
  3. TAKE ACTION [Suspect]
     Active Substance: LEVONORGESTREL
     Route: 065
     Dates: start: 201504, end: 201504

REACTIONS (1)
  - Menstruation delayed [Not Recovered/Not Resolved]
